FAERS Safety Report 4512189-4 (Version None)
Quarter: 2004Q4

REPORT INFORMATION
  Report Type: 
  Country: None (occurrence: None)
  Receive Date: 20041129
  Receipt Date: 20041104
  Transmission Date: 20050328
  Serious: Yes (Hospitalization)
  Sender: FDA-Public Use
  Company Number: US-ROCHE-386976

PATIENT

DRUGS (3)
  1. MYCOPHENOLATE MOFETIL [Suspect]
     Route: 065
  2. PREDNISONE [Suspect]
     Route: 065
  3. THYMOGLOBULIN [Suspect]
     Route: 065

REACTIONS (1)
  - ABDOMINAL HERNIA REPAIR [None]
